FAERS Safety Report 6928326-8 (Version None)
Quarter: 2010Q3

REPORT INFORMATION
  Report Type: 
  Country: None (occurrence: None)
  Receive Date: 20100817
  Receipt Date: 20100806
  Transmission Date: 20110219
  Serious: Yes (Other)
  Sender: FDA-Public Use
  Company Number: JP-ROCHE-720915

PATIENT
  Sex: Female
  Weight: 55 kg

DRUGS (9)
  1. CAPECITABINE [Suspect]
     Indication: BREAST CANCER
     Dosage: DOSE INCREASED.
     Route: 048
     Dates: start: 20081007, end: 20081007
  2. CAPECITABINE [Suspect]
     Route: 048
     Dates: start: 20081025, end: 20081128
  3. CAPECITABINE [Suspect]
     Route: 048
     Dates: start: 20081219, end: 20090212
  4. CAPECITABINE [Suspect]
     Route: 048
     Dates: start: 20090318, end: 20090421
  5. CAPECITABINE [Suspect]
     Route: 048
     Dates: start: 20090513, end: 20100112
  6. TYKERB [Concomitant]
     Route: 048
     Dates: start: 20081007, end: 20081007
  7. TYKERB [Concomitant]
     Route: 048
     Dates: start: 20081025, end: 20081204
  8. TYKERB [Concomitant]
     Route: 048
     Dates: start: 20081219, end: 20090428
  9. TYKERB [Concomitant]
     Route: 048
     Dates: start: 20090513, end: 20100119

REACTIONS (1)
  - LEFT VENTRICULAR DYSFUNCTION [None]
